FAERS Safety Report 6256637-0 (Version None)
Quarter: 2009Q3

REPORT INFORMATION
  Report Type: 
  Country: None (occurrence: None)
  Receive Date: 20090706
  Receipt Date: 20090626
  Transmission Date: 20100115
  Serious: Yes (Other)
  Sender: FDA-Public Use
  Company Number: JP-JNJFOC-20090503244

PATIENT
  Sex: Male
  Weight: 29 kg

DRUGS (1)
  1. CONCERTA [Suspect]
     Indication: ATTENTION DEFICIT/HYPERACTIVITY DISORDER
     Route: 048

REACTIONS (6)
  - AGITATION [None]
  - ANXIETY [None]
  - CRYING [None]
  - DECREASED APPETITE [None]
  - INSOMNIA [None]
  - INTENTIONAL SELF-INJURY [None]
